FAERS Safety Report 8885827 (Version 1)
Quarter: 2012Q4

REPORT INFORMATION
  Report Type: 
  Country: US (occurrence: US)
  Receive Date: 20121102
  Receipt Date: 20121102
  Transmission Date: 20130627
  Serious: Yes (Hospitalization, Other)
  Sender: FDA-Public Use
  Company Number: US-PFIZER INC-2012271242

PATIENT
  Age: 62 Year
  Sex: Female
  Weight: 161 kg

DRUGS (2)
  1. DETROL LA [Suspect]
     Indication: OVERACTIVE BLADDER
     Dosage: 4 mg,daily
  2. IBUPROFEN [Concomitant]
     Indication: HEADACHE
     Dosage: UNK, as needed

REACTIONS (5)
  - Animal scratch [Unknown]
  - Oedema [Unknown]
  - Diabetes mellitus [Unknown]
  - Cardiac failure congestive [Unknown]
  - Hypertension [Unknown]
